FAERS Safety Report 25404575 (Version 1)
Quarter: 2025Q2

REPORT INFORMATION
  Report Type: Spontaneous
  Country: US (occurrence: US)
  Receive Date: 20250606
  Receipt Date: 20250606
  Transmission Date: 20250716
  Serious: No
  Sender: AUROBINDO
  Company Number: US-AUROBINDO-AUR-APL-2024-053007

PATIENT
  Age: 29 Year
  Sex: Male
  Weight: 99.337 kg

DRUGS (1)
  1. LORATADINE [Suspect]
     Active Substance: LORATADINE
     Indication: Hypersensitivity
     Route: 065
     Dates: end: 20241021

REACTIONS (2)
  - Abdominal distension [Unknown]
  - Chromaturia [Unknown]
